FAERS Safety Report 9633347 (Version 1)
Quarter: 2013Q4

REPORT INFORMATION
  Report Type: Spontaneous
  Country: US (occurrence: US)
  Receive Date: 20131021
  Receipt Date: 20131021
  Transmission Date: 20140711
  Serious: No
  Sender: FDA-Public Use
  Company Number: US-B.I. PHARMACEUTICALS,INC./RIDGEFIELD-2013-BI-31861BP

PATIENT
  Age: 36 Year
  Sex: Female

DRUGS (4)
  1. ZANTAC 150 (RANITIDINE HYDROCHLORIDE) [Suspect]
     Indication: DYSPEPSIA
     Dosage: 300 MG
     Route: 048
     Dates: start: 20131008
  2. ZANTAC 150 (RANITIDINE HYDROCHLORIDE) [Suspect]
     Indication: DYSPEPSIA
  3. PREDNISONE [Concomitant]
     Indication: CROHN^S DISEASE
     Route: 048
     Dates: start: 201310
  4. GAS-X [Concomitant]
     Indication: FLATULENCE
     Route: 048
     Dates: start: 201310

REACTIONS (4)
  - Nausea [Recovered/Resolved]
  - Vomiting [Recovered/Resolved]
  - Throat irritation [Recovered/Resolved]
  - Medication error [Recovered/Resolved]
